FAERS Safety Report 4768830-4 (Version None)
Quarter: 2005Q3

REPORT INFORMATION
  Report Type: 
  Country: None (occurrence: None)
  Receive Date: 20050914
  Receipt Date: 20050909
  Transmission Date: 20060218
  Serious: Yes (Other)
  Sender: FDA-Public Use
  Company Number: CA-MERCK-0509USA01137

PATIENT
  Age: 48 Year
  Sex: Female
  Weight: 77 kg

DRUGS (2)
  1. SINGULAIR [Suspect]
     Route: 048
  2. PREDNISONE [Concomitant]
     Route: 065

REACTIONS (5)
  - BLOOD CREATININE INCREASED [None]
  - BLOOD UREA INCREASED [None]
  - HAEMOGLOBIN DECREASED [None]
  - RENAL FAILURE [None]
  - URINE ANALYSIS ABNORMAL [None]
